FAERS Safety Report 8154616-X (Version None)
Quarter: 2012Q1

REPORT INFORMATION
  Report Type: 
  Country: None (occurrence: None)
  Receive Date: 20120221
  Receipt Date: 20120214
  Transmission Date: 20120608
  Serious: Yes (Death)
  Sender: FDA-Public Use
  Company Number: US-BAYER-2012-015219

PATIENT
  Sex: Male

DRUGS (3)
  1. OXYCODONE HCL [Concomitant]
  2. ALEVE (CAPLET) [Suspect]
     Indication: PRODUCT USED FOR UNKNOWN INDICATION
     Dosage: UNK 8-12 TAB
     Route: 048
  3. ANALGESICS [Concomitant]

REACTIONS (3)
  - GASTRIC HAEMORRHAGE [None]
  - HALLUCINATION [None]
  - JAUNDICE [None]
